FAERS Safety Report 10182787 (Version 1)
Quarter: 2014Q2

REPORT INFORMATION
  Report Type: Spontaneous
  Country: BR (occurrence: BR)
  Receive Date: 20140520
  Receipt Date: 20140520
  Transmission Date: 20141212
  Serious: Yes (Hospitalization)
  Sender: FDA-Public Use
  Company Number: BR-BIOMARINAP-BR-2014-103221

PATIENT
  Age: 19 Year
  Sex: Male
  Weight: 28 kg

DRUGS (1)
  1. NAGLAZYME [Suspect]
     Indication: MUCOPOLYSACCHARIDOSIS VI
     Dosage: 30 MG, QW
     Route: 041
     Dates: start: 20081111

REACTIONS (1)
  - Pneumonia [Not Recovered/Not Resolved]
